FAERS Safety Report 4858657-7 (Version None)
Quarter: 2005Q4

REPORT INFORMATION
  Report Type: 
  Country: None (occurrence: None)
  Receive Date: 20051219
  Receipt Date: 20051014
  Transmission Date: 20060501
  Serious: No
  Sender: FDA-Public Use
  Company Number: US-GLAXOSMITHKLINE-A0578241A

PATIENT
  Age: 57 Year
  Sex: Female

DRUGS (1)
  1. EQUATE NTS 21MG [Suspect]
     Dates: start: 20051006, end: 20051013

REACTIONS (4)
  - APHTHOUS STOMATITIS [None]
  - GINGIVAL ULCERATION [None]
  - MOUTH ULCERATION [None]
  - TONGUE ULCERATION [None]
